FAERS Safety Report 21788867 (Version 1)
Quarter: 2022Q4

REPORT INFORMATION
  Report Type: Report from Study
  Country: US (occurrence: US)
  Receive Date: 20221228
  Receipt Date: 20221228
  Transmission Date: 20230113
  Serious: No
  Sender: FDA-Public Use
  Company Number: US-ABBVIE-22K-163-4383332-00

PATIENT
  Age: 59 Year
  Sex: Male

DRUGS (3)
  1. HUMIRA [Suspect]
     Active Substance: ADALIMUMAB
     Indication: Hidradenitis
     Route: 058
     Dates: start: 20211210
  2. HUMIRA [Suspect]
     Active Substance: ADALIMUMAB
     Route: 058
     Dates: start: 20211210
  3. PAXLOVID [Concomitant]
     Active Substance: NIRMATRELVIR\RITONAVIR
     Indication: Product used for unknown indication
     Dates: start: 20221111

REACTIONS (7)
  - Hidradenitis [Not Recovered/Not Resolved]
  - Skin irritation [Unknown]
  - Feeling abnormal [Unknown]
  - Pain [Unknown]
  - Pruritus [Unknown]
  - COVID-19 [Recovering/Resolving]
  - Bronchitis [Recovering/Resolving]

NARRATIVE: CASE EVENT DATE: 20221001
